FAERS Safety Report 6520901-8 (Version None)
Quarter: 2009Q4

REPORT INFORMATION
  Report Type: 
  Country: None (occurrence: None)
  Receive Date: 20091229
  Receipt Date: 20091217
  Transmission Date: 20100525
  Serious: Yes (Hospitalization, Other)
  Sender: FDA-Public Use
  Company Number: FR-PFIZER INC-2009153829

PATIENT
  Age: 84 Year
  Sex: Female

DRUGS (3)
  1. SUTENT [Suspect]
     Indication: RENAL CANCER
     Dosage: 37.5 MG, 1X/DAY
     Route: 048
     Dates: start: 20071231, end: 20080317
  2. SORAFENIB [Suspect]
     Dosage: 800 MG, 1X/DAY
     Route: 048
     Dates: start: 20080320, end: 20080402
  3. LETROZOLE [Concomitant]
     Indication: BREAST CANCER
     Dosage: 2.5 MG, UNK
     Route: 048
     Dates: end: 20070101

REACTIONS (2)
  - COLITIS [None]
  - ERYTHEMA MULTIFORME [None]
